FAERS Safety Report 4474454-9 (Version None)
Quarter: 2004Q4

REPORT INFORMATION
  Report Type: 
  Country: None (occurrence: None)
  Receive Date: 20041014
  Receipt Date: 20040930
  Transmission Date: 20050328
  Serious: Yes (Other)
  Sender: FDA-Public Use
  Company Number: US-MERCK-0410USA00027

PATIENT
  Age: 54 Year
  Sex: Female

DRUGS (8)
  1. NORVASC [Concomitant]
     Route: 065
     Dates: start: 20040901
  2. WELLBUTRIN [Concomitant]
     Route: 065
  3. ZYRTEC [Concomitant]
     Indication: HYPERSENSITIVITY
     Route: 065
     Dates: start: 20040901
  4. VASOTEC [Concomitant]
     Route: 048
     Dates: start: 20021001
  5. PLENDIL [Concomitant]
     Route: 065
  6. PREVACID [Concomitant]
     Route: 065
  7. VIOXX [Suspect]
     Route: 048
     Dates: start: 20020625, end: 20040925
  8. VIOXX [Suspect]
     Route: 048

REACTIONS (6)
  - ADVERSE EVENT [None]
  - INFECTION [None]
  - MESENTERIC ARTERY EMBOLISM [None]
  - MESENTERIC OCCLUSION [None]
  - OEDEMA PERIPHERAL [None]
  - POST PROCEDURAL COMPLICATION [None]
